FAERS Safety Report 25583528 (Version 1)
Quarter: 2025Q3

REPORT INFORMATION
  Report Type: Spontaneous
  Country: BR (occurrence: BR)
  Receive Date: 20250721
  Receipt Date: 20250721
  Transmission Date: 20251021
  Serious: Yes (Other)
  Sender: NOVO NORDISK
  Company Number: BR-NOVOPROD-1480265

PATIENT
  Age: 61 Year
  Sex: Male
  Weight: 90 kg

DRUGS (5)
  1. WEGOVY [Suspect]
     Active Substance: SEMAGLUTIDE
     Indication: Product used for unknown indication
     Dates: start: 2024
  2. WEGOVY [Suspect]
     Active Substance: SEMAGLUTIDE
  3. WEGOVY [Suspect]
     Active Substance: SEMAGLUTIDE
  4. OLMESARTAN [Concomitant]
     Active Substance: OLMESARTAN
     Dosage: 40 MG, QD
  5. JARDIANCE [Concomitant]
     Active Substance: EMPAGLIFLOZIN

REACTIONS (4)
  - Thyroid mass [Unknown]
  - Polyneuropathy [Unknown]
  - Nausea [Recovered/Resolved]
  - Product use issue [Unknown]

NARRATIVE: CASE EVENT DATE: 20240101
